FAERS Safety Report 6519351-X (Version None)
Quarter: 2009Q4

REPORT INFORMATION
  Report Type: 
  Country: None (occurrence: None)
  Receive Date: 20091228
  Receipt Date: 20091217
  Transmission Date: 20100525
  Serious: Yes (Hospitalization)
  Sender: FDA-Public Use
  Company Number: FR-BAYER-200943561GPV

PATIENT
  Age: 47 Year
  Sex: Male

DRUGS (2)
  1. NEXAVAR [Suspect]
     Indication: NEOPLASM MALIGNANT
     Route: 048
     Dates: start: 20090218, end: 20090225
  2. PROPRANOLOL [Concomitant]
     Indication: ARRHYTHMIA
     Route: 065

REACTIONS (1)
  - HEPATIC ENCEPHALOPATHY [None]
